FAERS Safety Report 15790901 (Version 3)
Quarter: 2019Q1

REPORT INFORMATION
  Report Type: Spontaneous
  Country: US (occurrence: US)
  Receive Date: 20190104
  Receipt Date: 20190220
  Transmission Date: 20190417
  Serious: No
  Sender: FDA-Public Use
  Company Number: US-ACTELION-A-NJ2018-184066

PATIENT
  Age: 33 Year
  Sex: Male

DRUGS (3)
  1. UPTRAVI [Suspect]
     Active Substance: SELEXIPAG
     Indication: PRODUCT USED FOR UNKNOWN INDICATION
     Dosage: UNK
     Route: 048
  2. AMBRISENTAN [Suspect]
     Active Substance: AMBRISENTAN
     Indication: PRODUCT USED FOR UNKNOWN INDICATION
     Dosage: 10 MG, QD
     Route: 065
     Dates: start: 20180103
  3. ADEMPAS [Concomitant]
     Active Substance: RIOCIGUAT

REACTIONS (6)
  - Somnolence [Not Recovered/Not Resolved]
  - Headache [Not Recovered/Not Resolved]
  - Abdominal pain upper [Not Recovered/Not Resolved]
  - Diarrhoea [Not Recovered/Not Resolved]
  - Abdominal discomfort [Recovering/Resolving]
  - Nausea [Not Recovered/Not Resolved]
